FAERS Safety Report 7406945-2 (Version None)
Quarter: 2011Q2

REPORT INFORMATION
  Report Type: 
  Country: None (occurrence: None)
  Receive Date: 20110411
  Receipt Date: 20110405
  Transmission Date: 20111010
  Serious: Yes (Other)
  Sender: FDA-Public Use
  Company Number: US-PFIZER INC-2011049588

PATIENT
  Sex: Male

DRUGS (3)
  1. WELLBUTRIN [Concomitant]
     Dosage: 150 MG, 1X/DAY
  2. GEODON [Suspect]
     Indication: SCHIZOAFFECTIVE DISORDER
     Dosage: 160 MG, 1X/DAY
     Route: 048
     Dates: start: 20110120, end: 20110315
  3. DEPAKOTE [Concomitant]
     Indication: MOOD ALTERED
     Dosage: 3000 MG, 1X/DAY

REACTIONS (1)
  - TARDIVE DYSKINESIA [None]
